FAERS Safety Report 15841012 (Version 3)
Quarter: 2021Q1

REPORT INFORMATION
  Report Type: Report from Study
  Country: JP (occurrence: JP)
  Receive Date: 20190118
  Receipt Date: 20210203
  Transmission Date: 20210419
  Serious: Yes (Other)
  Sender: FDA-Public Use
  Company Number: JP-BIOGEN-2019BI00684076

PATIENT
  Age: 59 Year
  Sex: Female
  Weight: 53 kg

DRUGS (13)
  1. SPINRAZA [Suspect]
     Active Substance: NUSINERSEN
     Route: 050
     Dates: start: 20181107, end: 20181107
  2. TRAMCET [Concomitant]
     Active Substance: ACETAMINOPHEN\TRAMADOL
     Indication: DIABETES MELLITUS
     Route: 048
  3. TAKECAB [Concomitant]
     Active Substance: VONOPRAZAN FUMARATE
     Indication: DIABETES MELLITUS
     Route: 048
  4. METGLUCO [Concomitant]
     Active Substance: METFORMIN HYDROCHLORIDE
     Indication: DIABETES MELLITUS
     Route: 048
  5. EQUA [Concomitant]
     Active Substance: VILDAGLIPTIN
     Indication: DIABETES MELLITUS
     Route: 048
  6. MIGLITOL OD [Concomitant]
     Indication: DIABETES MELLITUS
     Route: 048
  7. SPINRAZA [Suspect]
     Active Substance: NUSINERSEN
     Route: 050
     Dates: start: 20200819
  8. PENLES [Concomitant]
     Active Substance: LIDOCAINE
     Indication: ANAESTHESIA PROCEDURE
     Route: 062
  9. EQUMET [Concomitant]
     Active Substance: METFORMIN HYDROCHLORIDE\VILDAGLIPTIN
     Indication: DIABETES MELLITUS
     Route: 048
  10. SEIBULE [Concomitant]
     Active Substance: MIGLITOL
     Indication: DIABETES MELLITUS
     Route: 048
  11. XYLOCAINE [Concomitant]
     Active Substance: LIDOCAINE HYDROCHLORIDE
     Indication: ANAESTHESIA PROCEDURE
     Route: 058
  12. SPINRAZA [Suspect]
     Active Substance: NUSINERSEN
     Indication: SPINAL MUSCULAR ATROPHY
     Route: 050
     Dates: start: 20181010, end: 20181010
  13. SPINRAZA [Suspect]
     Active Substance: NUSINERSEN
     Route: 050
     Dates: start: 20190109, end: 20190109

REACTIONS (2)
  - Hepatic function abnormal [Unknown]
  - Breast cancer [Not Recovered/Not Resolved]

NARRATIVE: CASE EVENT DATE: 20181217
